FAERS Safety Report 14165142 (Version 5)
Quarter: 2017Q4

REPORT INFORMATION
  Report Type: Report from Study
  Country: JP (occurrence: JP)
  Receive Date: 20171107
  Receipt Date: 20171214
  Transmission Date: 20180321
  Serious: Yes (Death)
  Sender: FDA-Public Use
  Company Number: JP-PFIZER INC-2017473494

PATIENT
  Age: 43 Year
  Sex: Male
  Weight: 65 kg

DRUGS (8)
  1. ALESION [Concomitant]
     Active Substance: EPINASTINE HYDROCHLORIDE
     Dosage: 10 MG, 1X/DAY (GIVEN SINCE BEFORE THE INITIATION OF CRIZOTINIB AT 10 MG ONCE DAILY)
     Route: 048
  2. XALKORI [Suspect]
     Active Substance: CRIZOTINIB
     Indication: NON-SMALL CELL LUNG CANCER
     Dosage: 250 MG, 2X/DAY
     Route: 048
     Dates: start: 20141015, end: 20150409
  3. ETIZOLAM [Concomitant]
     Active Substance: ETIZOLAM
     Dosage: 1 MG, 1X/DAY (GIVEN SINCE BEFORE THE INITIATION OF CRIZOTINIB AT 1 MG ONCE DAILY)
     Route: 048
  4. CELECOX [Concomitant]
     Active Substance: CELECOXIB
     Dosage: 100 MG, 2X/DAY(GIVEN SINCE BEFORE THE INITIATION OF CRIZOTINIB AT 100 MG TWICE DAILY)
     Route: 048
  5. MUCOSOLVAN L [Concomitant]
     Active Substance: AMBROXOL HYDROCHLORIDE
     Dosage: 45 MG, 1X/DAY (GIVEN SINCE BEFORE THE INITIATION OF CRIZOTINIB AT 45 MG ONCE DAILY)
     Route: 048
  6. LENDORMIN [Concomitant]
     Active Substance: BROTIZOLAM
     Dosage: 0.25 MG, 1X/DAY
     Route: 048
     Dates: start: 20141106
  7. OXINORM /00045603/ [Concomitant]
     Active Substance: OXYCODONE HYDROCHLORIDE
     Dosage: 2.5 MG, 1X/DAY
     Route: 048
     Dates: start: 20141211
  8. OXYCONTIN [Concomitant]
     Active Substance: OXYCODONE HYDROCHLORIDE
     Dosage: 5 MG, 2X/DAY
     Route: 048
     Dates: start: 20150122

REACTIONS (1)
  - Acute respiratory distress syndrome [Fatal]

NARRATIVE: CASE EVENT DATE: 20150409
